FAERS Safety Report 18913260 (Version 1)
Quarter: 2021Q1

REPORT INFORMATION
  Report Type: Spontaneous
  Country: KR (occurrence: KR)
  Receive Date: 20210219
  Receipt Date: 20210219
  Transmission Date: 20210420
  Serious: Yes (Death, Other)
  Sender: FDA-Public Use
  Company Number: KR-SA-2021SA055609

PATIENT

DRUGS (2)
  1. OXALIPLATIN. [Suspect]
     Active Substance: OXALIPLATIN
     Indication: GASTRIC CANCER STAGE II
     Dosage: 130 MG/M? ON DAY 1 OF EACH CYCLE
  2. CAPECITABINE. [Suspect]
     Active Substance: CAPECITABINE
     Indication: GASTRIC CANCER STAGE II
     Dosage: 1000 MG/M? TWICE DAILY ON DAYS 1 TO 14 OF EACH CYCLE)

REACTIONS (1)
  - Sepsis [Fatal]
